FAERS Safety Report 13387145 (Version 8)
Quarter: 2018Q3

REPORT INFORMATION
  Report Type: Spontaneous
  Country: JP (occurrence: JP)
  Receive Date: 20170330
  Receipt Date: 20180723
  Transmission Date: 20181010
  Serious: Yes (Other)
  Sender: FDA-Public Use
  Company Number: JP-AMGEN-JPNSP2017010870

PATIENT
  Sex: Male

DRUGS (5)
  1. ORENCIA [Suspect]
     Active Substance: ABATACEPT
     Indication: RHEUMATOID ARTHRITIS
     Dosage: UNK
     Route: 065
  2. RHEUMATREX [Suspect]
     Active Substance: METHOTREXATE SODIUM
     Indication: PRODUCT USED FOR UNKNOWN INDICATION
     Dosage: 4 CAPSULES, UNK
     Route: 048
  3. ENBREL [Suspect]
     Active Substance: ETANERCEPT
     Indication: RHEUMATOID ARTHRITIS
     Dosage: 50 MG, QWK
     Route: 058
     Dates: end: 201603
  4. FOLIAMIN [Concomitant]
     Active Substance: FOLIC ACID
     Dosage: 2 DF, QWK (2 TABLETS EVERY SUNDAY, WEEKLY)
     Route: 048
  5. ENBREL [Suspect]
     Active Substance: ETANERCEPT
     Dosage: 50 MG, QWK
     Route: 065

REACTIONS (13)
  - Condition aggravated [Unknown]
  - Liver function test increased [Unknown]
  - Matrix metalloproteinase-3 increased [Unknown]
  - Malaise [Unknown]
  - Rheumatoid factor increased [Unknown]
  - Injection site pain [Unknown]
  - Wrong technique in device usage process [Unknown]
  - Rheumatoid arthritis [Unknown]
  - Pain [Unknown]
  - Therapeutic response decreased [Unknown]
  - Weight increased [Unknown]
  - Arthralgia [Unknown]
  - Joint swelling [Unknown]

NARRATIVE: CASE EVENT DATE: 20180405
